FAERS Safety Report 8975797 (Version 1)
Quarter: 2012Q4

REPORT INFORMATION
  Report Type: 
  Country: JP (occurrence: JP)
  Receive Date: 20121219
  Receipt Date: 20121219
  Transmission Date: 20130627
  Serious: Yes (Other)
  Sender: FDA-Public Use
  Company Number: JP-ROCHE-1170015

PATIENT
  Age: 1 Year
  Sex: Male

DRUGS (1)
  1. OSELTAMIVIR [Suspect]
     Indication: H1N1 INFLUENZA
     Dosage: twice a day, for 5 days
     Route: 048

REACTIONS (2)
  - Drug resistance [Unknown]
  - Drug ineffective [Unknown]
